FAERS Safety Report 23780735 (Version 1)
Quarter: 2024Q2

REPORT INFORMATION
  Report Type: Spontaneous
  Country: US (occurrence: US)
  Receive Date: 20240425
  Receipt Date: 20240425
  Transmission Date: 20240716
  Serious: No
  Sender: FDA-Public Use
  Company Number: US-SUN PHARMACEUTICAL INDUSTRIES LTD-2023R1-404581

PATIENT
  Sex: Female
  Weight: 0.045 kg

DRUGS (2)
  1. ILUMYA [Suspect]
     Active Substance: TILDRAKIZUMAB-ASMN
     Indication: Psoriasis
     Dosage: UNK (100 MG UNDER THE SKIN ,EVERY 10 WEEKS)
     Route: 058
  2. ILUMYA [Suspect]
     Active Substance: TILDRAKIZUMAB-ASMN
     Dosage: UNK (100 MG UNDER THE SKIN ,EVERY 12 WEEKS)
     Route: 058

REACTIONS (3)
  - Off label use [Unknown]
  - Psoriasis [Unknown]
  - Product dose omission issue [Unknown]
